FAERS Safety Report 10478834 (Version 1)
Quarter: 2014Q3

REPORT INFORMATION
  Report Type: Report from Study
  Country: CN (occurrence: CN)
  Receive Date: 20140926
  Receipt Date: 20140926
  Transmission Date: 20150326
  Serious: Yes (Hospitalization, Other)
  Sender: FDA-Public Use
  Company Number: CN-ASTELLAS-2014US013421

PATIENT
  Sex: Female

DRUGS (1)
  1. ERLOTINIB [Suspect]
     Active Substance: ERLOTINIB
     Indication: NON-SMALL CELL LUNG CANCER
     Route: 048
     Dates: start: 20120814

REACTIONS (5)
  - Gait disturbance [Unknown]
  - Pulmonary mass [Unknown]
  - Neoplasm progression [Unknown]
  - Lung neoplasm [Unknown]
  - Intervertebral disc protrusion [Unknown]
